FAERS Safety Report 7313693-6 (Version None)
Quarter: 2011Q1

REPORT INFORMATION
  Report Type: 
  Country: None (occurrence: None)
  Receive Date: 20110225
  Receipt Date: 20110214
  Transmission Date: 20110831
  Serious: Yes (Other)
  Sender: FDA-Public Use
  Company Number: US-ELI_LILLY_AND_COMPANY-US201102004017

PATIENT
  Sex: Female

DRUGS (3)
  1. CYMBALTA [Suspect]
     Dosage: UNK, UNKNOWN
     Route: 048
     Dates: start: 20110205
  2. ADVIL LIQUI-GELS [Concomitant]
     Indication: UPPER RESPIRATORY TRACT CONGESTION
     Dosage: 200 MG, UNK
     Route: 048
  3. BENADRYL [Concomitant]
     Dosage: 2 D/F, UNK
     Dates: start: 20110205

REACTIONS (1)
  - CHEST DISCOMFORT [None]
